FAERS Safety Report 19067358 (Version 1)
Quarter: 2021Q1

REPORT INFORMATION
  Report Type: Spontaneous
  Country: FR (occurrence: FR)
  Receive Date: 20210329
  Receipt Date: 20210329
  Transmission Date: 20210420
  Serious: Yes (Hospitalization)
  Sender: FDA-Public Use
  Company Number: FR-BEH-2021129770

PATIENT
  Age: 46 Year
  Weight: 76 kg

DRUGS (4)
  1. PRIVIGEN [Suspect]
     Active Substance: HUMAN IMMUNOGLOBULIN G
     Dosage: UNK
     Route: 041
     Dates: start: 20210128, end: 20210131
  2. PRIVIGEN [Suspect]
     Active Substance: HUMAN IMMUNOGLOBULIN G
     Dosage: UNK
     Route: 041
     Dates: start: 20210128, end: 20210131
  3. PRIVIGEN [Suspect]
     Active Substance: HUMAN IMMUNOGLOBULIN G
     Dosage: UNK
     Route: 041
     Dates: start: 20210128, end: 20210131
  4. PRIVIGEN [Suspect]
     Active Substance: HUMAN IMMUNOGLOBULIN G
     Indication: NEUROMYOTONIA
     Dosage: 150 GRAM OVER 4 DAYS
     Route: 041
     Dates: start: 20210128, end: 20210131

REACTIONS (3)
  - No adverse event [Unknown]
  - Off label use [Unknown]
  - Meningitis [Recovered/Resolved]

NARRATIVE: CASE EVENT DATE: 20210202
